FAERS Safety Report 19165045 (Version 1)
Quarter: 2021Q2

REPORT INFORMATION
  Report Type: Spontaneous
  Country: US (occurrence: US)
  Receive Date: 20210421
  Receipt Date: 20210421
  Transmission Date: 20210717
  Serious: No
  Sender: FDA-Public Use
  Company Number: US-SA-2021SA128939

PATIENT
  Age: 16 Year
  Sex: Female

DRUGS (8)
  1. BACTRIM [Concomitant]
     Active Substance: SULFAMETHOXAZOLE\TRIMETHOPRIM
  2. MORPHINE SULPHATE [Concomitant]
     Active Substance: MORPHINE SULFATE
     Dosage: 10/5ML
  3. DOXYCYCLINE [DOXYCYCLINE HYCLATE] [Concomitant]
  4. MORGIDOX [Concomitant]
     Active Substance: DOXYCYCLINE HYCLATE
  5. CLINDAMYCIN [CLINDAMYCIN HYDROCHLORIDE] [Concomitant]
     Active Substance: CLINDAMYCIN HYDROCHLORIDE
  6. ZARTAN [Concomitant]
     Active Substance: LOSARTAN POTASSIUM
  7. IBUPROFEN. [Concomitant]
     Active Substance: IBUPROFEN
  8. DUPIXENT [Suspect]
     Active Substance: DUPILUMAB
     Dosage: 300 MG, QOW
     Route: 058
     Dates: start: 20181231

REACTIONS (3)
  - Condition aggravated [Not Recovered/Not Resolved]
  - Insomnia [Not Recovered/Not Resolved]
  - Rash [Not Recovered/Not Resolved]
